FAERS Safety Report 7042197-3 (Version None)
Quarter: 2010Q3

REPORT INFORMATION
  Report Type: 
  Country: None (occurrence: None)
  Receive Date: 20100929
  Receipt Date: 20100812
  Transmission Date: 20110219
  Serious: No
  Sender: FDA-Public Use
  Company Number: US-WYE-H17003910

PATIENT
  Age: 52 Year
  Sex: Female
  Weight: 44.49 kg

DRUGS (2)
  1. PRISTIQ [Suspect]
     Indication: DEPRESSION
     Dosage: 50 MG 1X PER 1 DAY
     Dates: start: 20100811, end: 20100811
  2. LITHIUM CARBONATE [Concomitant]

REACTIONS (10)
  - ACTIVITIES OF DAILY LIVING IMPAIRED [None]
  - FATIGUE [None]
  - FEELING ABNORMAL [None]
  - FEELING JITTERY [None]
  - INTENTIONAL DRUG MISUSE [None]
  - LETHARGY [None]
  - MALAISE [None]
  - NERVOUSNESS [None]
  - SOMNOLENCE [None]
  - UNEVALUABLE EVENT [None]
